FAERS Safety Report 12345824 (Version 2)
Quarter: 2016Q3

REPORT INFORMATION
  Report Type: Spontaneous
  Country: US (occurrence: US)
  Receive Date: 20160509
  Receipt Date: 20160715
  Transmission Date: 20161109
  Serious: Yes (Other)
  Sender: FDA-Public Use
  Company Number: US-AUROBINDO-AUR-APL-2016-05364

PATIENT
  Sex: Female

DRUGS (1)
  1. CEFDINIR ORAL SUSPENSION [Suspect]
     Active Substance: CEFDINIR
     Indication: URINARY TRACT INFECTION
     Dosage: UNK
     Route: 065

REACTIONS (1)
  - Haematochezia [Recovered/Resolved]
